FAERS Safety Report 17517654 (Version 1)
Quarter: 2020Q1

REPORT INFORMATION
  Report Type: Spontaneous
  Country: US (occurrence: US)
  Receive Date: 20200309
  Receipt Date: 20200309
  Transmission Date: 20200409
  Serious: Yes (Other)
  Sender: FDA-Public Use
  Company Number: None

PATIENT
  Age: 61 Year
  Sex: Female
  Weight: 55.8 kg

DRUGS (2)
  1. SCOPOLOMINE [Suspect]
     Active Substance: SCOPOLAMINE
     Indication: MOTION SICKNESS
     Dosage: ?          QUANTITY:1 PATCH;OTHER FREQUENCY:EVERY 72 HOURS;?
     Route: 061
     Dates: start: 20200301, end: 20200304
  2. HCTZ 12.5 MG UNICHEM [Concomitant]
     Active Substance: HYDROCHLOROTHIAZIDE

REACTIONS (6)
  - Cough [None]
  - Influenza [None]
  - Disorientation [None]
  - Dry mouth [None]
  - Confusional state [None]
  - Malaise [None]

NARRATIVE: CASE EVENT DATE: 20200301
